FAERS Safety Report 10068011 (Version 3)
Quarter: 2014Q2

REPORT INFORMATION
  Report Type: Report from Study
  Country: US (occurrence: US)
  Receive Date: 20140409
  Receipt Date: 20140618
  Transmission Date: 20141212
  Serious: Yes (Hospitalization, Other)
  Sender: FDA-Public Use
  Company Number: US-SA-2014SA039836

PATIENT
  Age: 60 Year
  Sex: Female

DRUGS (12)
  1. AUBAGIO [Suspect]
     Indication: MULTIPLE SCLEROSIS
     Route: 048
     Dates: start: 20130607
  2. BACLOFEN [Concomitant]
  3. GABAPENTIN [Concomitant]
     Route: 048
  4. LYRICA [Concomitant]
  5. CLONAZEPAM [Concomitant]
  6. VITAMIN D3 [Concomitant]
  7. LIPITOR [Concomitant]
  8. OXYBUTYNIN [Concomitant]
  9. LEVOTHYROXINE [Concomitant]
  10. SENNA [Concomitant]
     Dosage: DOSE:2 UNIT(S)
     Route: 048
  11. NASONEX [Concomitant]
     Dosage: DOSE:2 PUFF(S)
     Route: 045
  12. PROTONIX [Concomitant]

REACTIONS (11)
  - Dizziness [Unknown]
  - Loss of control of legs [Unknown]
  - Supraventricular tachycardia [Recovering/Resolving]
  - Syncope [Recovering/Resolving]
  - Limb discomfort [Unknown]
  - Weight decreased [Unknown]
  - Cold sweat [Unknown]
  - Posture abnormal [Unknown]
  - Hypoaesthesia [Unknown]
  - Paraesthesia [Unknown]
  - Drug dose omission [Unknown]
